FAERS Safety Report 10638843 (Version 2)
Quarter: 2015Q1

REPORT INFORMATION
  Report Type: Spontaneous
  Country: US (occurrence: US)
  Receive Date: 20141208
  Receipt Date: 20150224
  Transmission Date: 20150720
  Serious: No
  Sender: FDA-Public Use
  Company Number: US-PFIZER INC-2014335435

PATIENT
  Sex: Female

DRUGS (3)
  1. SKELAXIN [Suspect]
     Active Substance: METAXALONE
     Dosage: UNK
  2. CELEBREX [Suspect]
     Active Substance: CELECOXIB
     Dosage: UNK
  3. CYTOMEL [Suspect]
     Active Substance: LIOTHYRONINE SODIUM
     Dosage: UNK

REACTIONS (7)
  - Weight increased [Unknown]
  - Tremor [Unknown]
  - Pain [Unknown]
  - Upper limb fracture [Unknown]
  - Headache [Unknown]
  - Gastrointestinal disorder [Unknown]
  - Intervertebral disc protrusion [Unknown]
